FAERS Safety Report 9373627 (Version 3)
Quarter: 2013Q3

REPORT INFORMATION
  Report Type: Report from Study
  Country: BR (occurrence: BR)
  Receive Date: 20130627
  Receipt Date: 20130911
  Transmission Date: 20140515
  Serious: Yes (Hospitalization)
  Sender: FDA-Public Use
  Company Number: BR-ABBOTT-13P-020-1093281-00

PATIENT
  Age: 61 Year
  Sex: Female
  Weight: 84 kg

DRUGS (6)
  1. HUMIRA [Suspect]
     Indication: RHEUMATOID ARTHRITIS
     Route: 058
     Dates: start: 20130506
  2. UNKNOWN MEDICATION [Suspect]
     Indication: PAIN
  3. ACETAMINOPHEN [Concomitant]
     Indication: PAIN
     Route: 048
     Dates: start: 2005
  4. PREDNISONE [Concomitant]
     Indication: PAIN
     Route: 048
     Dates: start: 2005
  5. ARAVA [Concomitant]
     Indication: PAIN
     Route: 048
     Dates: start: 2005
  6. UNKNOWN VITAMIN [Concomitant]
     Indication: PRODUCT USED FOR UNKNOWN INDICATION

REACTIONS (24)
  - Bone pain [Recovered/Resolved]
  - Pain [Not Recovered/Not Resolved]
  - Gait disturbance [Not Recovered/Not Resolved]
  - Musculoskeletal pain [Not Recovered/Not Resolved]
  - Ear pain [Not Recovered/Not Resolved]
  - Arthralgia [Not Recovered/Not Resolved]
  - Arthralgia [Not Recovered/Not Resolved]
  - Headache [Not Recovered/Not Resolved]
  - Pain in extremity [Not Recovered/Not Resolved]
  - Neck pain [Not Recovered/Not Resolved]
  - Movement disorder [Not Recovered/Not Resolved]
  - Arthralgia [Not Recovered/Not Resolved]
  - Arthralgia [Not Recovered/Not Resolved]
  - Local swelling [Unknown]
  - Skin hypertrophy [Not Recovered/Not Resolved]
  - Muscular weakness [Not Recovered/Not Resolved]
  - Decreased appetite [Unknown]
  - Headache [Recovered/Resolved]
  - Nausea [Not Recovered/Not Resolved]
  - Drug ineffective [Unknown]
  - Pain [Unknown]
  - Pain [Unknown]
  - Local swelling [Unknown]
  - Nausea [Unknown]
